FAERS Safety Report 9948966 (Version 1)
Quarter: 2014Q1

REPORT INFORMATION
  Report Type: Spontaneous
  Country: US (occurrence: None)
  Receive Date: 20140122
  Receipt Date: 20140122
  Transmission Date: 20141002
  Serious: No
  Sender: FDA-Public Use
  Company Number: AEGR000231

PATIENT
  Age: 59 Year
  Sex: Female
  Weight: 82.5 kg

DRUGS (3)
  1. JUXTAPID (LOMITAPIDE) CAPSULE, 5MG [Suspect]
     Indication: TYPE IIA HYPERLIPIDAEMIA
     Route: 048
     Dates: start: 20131206
  2. ASPIRIN (ACETYLSALICYLIC ACID) [Concomitant]
  3. ALEVE (NAPROXEN SODIUM) [Concomitant]

REACTIONS (2)
  - Nausea [None]
  - Abdominal pain upper [None]
